FAERS Safety Report 8492243-5 (Version None)
Quarter: 2012Q3

REPORT INFORMATION
  Report Type: 
  Country: None (occurrence: None)
  Receive Date: 20120706
  Receipt Date: 20120628
  Transmission Date: 20120928
  Serious: Yes (Hospitalization)
  Sender: FDA-Public Use
  Company Number: US-B.I. PHARMACEUTICALS,INC./RIDGEFIELD-2012-BP-14735BP

PATIENT
  Sex: Female

DRUGS (10)
  1. PRADAXA [Suspect]
     Indication: CEREBROVASCULAR ACCIDENT PROPHYLAXIS
     Dosage: 150 MG
     Route: 048
     Dates: start: 20110801, end: 20120628
  2. ALLOPURINOL [Concomitant]
     Indication: GOUT
     Dosage: 300 MG
     Route: 048
  3. CRESTOR [Concomitant]
     Dosage: 10 MG
     Route: 048
  4. PROTONIX [Concomitant]
     Dosage: 40 MG
     Route: 048
  5. BUMEX [Concomitant]
     Dosage: 1 MG
     Route: 048
  6. COREG [Concomitant]
     Dosage: 12.5 MG
     Route: 048
  7. ASPIRIN [Concomitant]
     Dosage: 325 MG
     Route: 048
  8. IMDUR [Concomitant]
     Indication: ISCHAEMIC CARDIOMYOPATHY
     Dosage: 30 MG
     Route: 048
  9. PRADAXA [Suspect]
     Indication: ATRIAL FIBRILLATION
  10. POTASSIUM CHLORIDE [Concomitant]
     Dosage: 40 MEQ
     Route: 048

REACTIONS (5)
  - FATIGUE [None]
  - PANCYTOPENIA [None]
  - CHEST PAIN [None]
  - BONE MARROW FAILURE [None]
  - MALAISE [None]
